FAERS Safety Report 9895591 (Version 1)
Quarter: 2014Q1

REPORT INFORMATION
  Report Type: Spontaneous
  Country: US (occurrence: US)
  Receive Date: 20140213
  Receipt Date: 20140213
  Transmission Date: 20141002
  Serious: Yes (Other)
  Sender: FDA-Public Use
  Company Number: US-BRISTOL-MYERS SQUIBB COMPANY-17376096

PATIENT
  Sex: Female

DRUGS (4)
  1. ORENCIA [Suspect]
     Indication: RHEUMATOID ARTHRITIS
     Dosage: ORENCIA IV/SQ
  2. METHOTREXATE [Suspect]
  3. PREDNISONE [Concomitant]
  4. PLAQUENIL [Concomitant]

REACTIONS (1)
  - Malignant melanoma [Unknown]
